FAERS Safety Report 11147131 (Version 2)
Quarter: 2015Q2

REPORT INFORMATION
  Report Type: Report from Study
  Country: IT (occurrence: IT)
  Receive Date: 20150528
  Receipt Date: 20150613
  Transmission Date: 20150821
  Serious: Yes (Hospitalization, Other)
  Sender: FDA-Public Use
  Company Number: IT-ABBVIE-15P-083-1396369-00

PATIENT
  Age: 70 Year
  Sex: Male
  Weight: 57 kg

DRUGS (7)
  1. MERREM [Concomitant]
     Active Substance: MEROPENEM
     Indication: PNEUMONIA
  2. OXYGEN. [Concomitant]
     Active Substance: OXYGEN
     Indication: PNEUMONIA
  3. DUODOPA [Suspect]
     Active Substance: CARBIDOPA\LEVODOPA
     Indication: PARKINSON^S DISEASE
     Dosage: MD 10,0?CR  7,0?ED  6,0
     Route: 050
     Dates: start: 20150519, end: 20150520
  4. SEROQUEL [Concomitant]
     Active Substance: QUETIAPINE FUMARATE
     Indication: PRODUCT USED FOR UNKNOWN INDICATION
  5. CLEXANE [Concomitant]
     Active Substance: ENOXAPARIN SODIUM
     Indication: PRODUCT USED FOR UNKNOWN INDICATION
  6. OMEPRAZOLE. [Concomitant]
     Active Substance: OMEPRAZOLE
     Indication: PRODUCT USED FOR UNKNOWN INDICATION
  7. EUTIROX [Concomitant]
     Active Substance: LEVOTHYROXINE SODIUM
     Indication: PRODUCT USED FOR UNKNOWN INDICATION

REACTIONS (3)
  - Aspiration [Not Recovered/Not Resolved]
  - Lung disorder [Not Recovered/Not Resolved]
  - Vomiting [Unknown]

NARRATIVE: CASE EVENT DATE: 20150520
